FAERS Safety Report 10207348 (Version 1)
Quarter: 2014Q2

REPORT INFORMATION
  Report Type: Spontaneous
  Country: US (occurrence: US)
  Receive Date: 20140530
  Receipt Date: 20140530
  Transmission Date: 20141212
  Serious: No
  Sender: FDA-Public Use
  Company Number: US-GLAXOSMITHKLINE-A1035708A

PATIENT
  Age: 88 Year
  Sex: Female

DRUGS (10)
  1. VENTOLIN [Suspect]
     Indication: PULMONARY FIBROSIS
     Dosage: 2PUFF FOUR TIMES PER DAY
     Route: 055
     Dates: start: 201306
  2. NEXIUM [Concomitant]
  3. RAMIPRIL [Concomitant]
  4. METFORMIN [Concomitant]
  5. GLIPIZIDE [Concomitant]
  6. ATENOLOL [Concomitant]
  7. CARAFATE [Concomitant]
  8. RESTASIS [Concomitant]
     Route: 047
  9. CALTRATE [Concomitant]
  10. EYE MEDICATION [Concomitant]

REACTIONS (1)
  - Drug administration error [Unknown]
